FAERS Safety Report 23804102 (Version 1)
Quarter: 2024Q2

REPORT INFORMATION
  Report Type: Spontaneous
  Country: FR (occurrence: FR)
  Receive Date: 20240501
  Receipt Date: 20240501
  Transmission Date: 20240716
  Serious: Yes (Hospitalization, Other)
  Sender: FDA-Public Use
  Company Number: FR-AstraZeneca-2014SE51864

PATIENT
  Age: 4 Year
  Sex: Female
  Weight: 15 kg

DRUGS (29)
  1. LIDOCAINE HYDROCHLORIDE [Suspect]
     Active Substance: LIDOCAINE HYDROCHLORIDE
     Indication: Product used for unknown indication
     Dosage: UNK?FORM OF ADMIN: SOLUTION FOR INJECTION
     Route: 065
  2. ACETAMINOPHEN [Suspect]
     Active Substance: ACETAMINOPHEN
     Indication: Hand-foot-and-mouth disease
     Dosage: 15 MG/KG/6 TIMES A DAY
     Route: 048
     Dates: start: 20140603
  3. ACETAMINOPHEN [Suspect]
     Active Substance: ACETAMINOPHEN
     Dosage: 4 TIMES A DAY
     Route: 048
     Dates: start: 20140610
  4. CLARITHROMYCIN [Suspect]
     Active Substance: CLARITHROMYCIN
     Indication: Product used for unknown indication
     Dosage: UNK
     Route: 065
  5. OMEPRAZOLE [Suspect]
     Active Substance: DONEPEZIL HYDROCHLORIDE\OMEPRAZOLE\OMEPRAZOLE MAGNESIUM
     Indication: Product used for unknown indication
     Dosage: UNK
     Route: 048
  6. AMOXICILLIN\CLAVULANATE POTASSIUM [Suspect]
     Active Substance: AMOXICILLIN\CLAVULANATE POTASSIUM
     Indication: Product used for unknown indication
     Dosage: UNK
     Route: 065
     Dates: start: 20140604, end: 20140611
  7. FLUORESCEIN SODIUM [Concomitant]
     Active Substance: FLUORESCEIN SODIUM
     Indication: Product used for unknown indication
     Dosage: BIDAILY ON THE WHOLE BODY
     Route: 065
     Dates: end: 20140611
  8. Amphotericine B [AMPHOTERICIN B] [Concomitant]
     Indication: Product used for unknown indication
     Dosage: UNK
     Route: 065
  9. RETINOL [Concomitant]
     Active Substance: RETINOL
     Indication: Product used for unknown indication
     Dosage: ON LIPS AND OPHTHALMIC UNGUENT
     Route: 065
  10. Paroex [CHLORHEXIDINE GLUCONATE] [Concomitant]
     Indication: Product used for unknown indication
     Dosage: MOUTH WASH?FOA: MOUTH WASH
     Route: 065
  11. Chibro cadron [DEXAMETHASONE SODIUM PHOSPHATE, NEOMYCIN SULFATE] [Concomitant]
     Indication: Product used for unknown indication
     Dosage: UNK
     Route: 065
  12. SODIUM BICARBONATE [Concomitant]
     Active Substance: SODIUM BICARBONATE
     Indication: Product used for unknown indication
     Dosage: UNK
     Route: 065
  13. JELONET [PARAFFIN] [Concomitant]
     Indication: Product used for unknown indication
     Dosage: FACE
     Route: 065
  14. Primalan [MEQUITAZINE] [Concomitant]
     Indication: Product used for unknown indication
     Dosage: UNK
     Route: 065
  15. DESLORATADINE [Concomitant]
     Active Substance: DESLORATADINE
     Indication: Hand-foot-and-mouth disease
     Dosage: UNK
     Route: 065
     Dates: start: 20140603
  16. NALBUPHINE [Concomitant]
     Active Substance: NALBUPHINE
     Indication: Product used for unknown indication
     Dosage: UNK
     Route: 065
     Dates: end: 20140610
  17. Sondalis hp [CHOLINE, ELECTROLYTES NOS, GLUCOSE, INOSITOL, LIPIDS NOS, [Concomitant]
     Indication: Product used for unknown indication
     Dosage: FIBERS 1200 ML 6 TIMES A DAY
     Route: 065
  18. JOSACINE [JOSAMYCIN] [Concomitant]
     Indication: Product used for unknown indication
     Dosage: UNK
     Route: 065
  19. Ibuprofene [IBUPROFEN] [Concomitant]
     Indication: Hand-foot-and-mouth disease
     Dosage: UNK
     Route: 065
     Dates: start: 20140603
  20. POLYETHYLENE GLYCOL 4000 [Concomitant]
     Active Substance: POLYETHYLENE GLYCOL 4000
     Indication: Product used for unknown indication
     Dosage: 120 MG AT MIDDAY, FOR 15 DAYS
     Route: 045
  21. KETAMINE HYDROCHLORIDE [Concomitant]
     Active Substance: KETAMINE HYDROCHLORIDE
     Indication: Product used for unknown indication
     Dosage: 1-2 TIMES DAILY DURING CARES
     Route: 065
     Dates: end: 20140610
  22. Aquacel [CARMELLOSE SODIUM] [Concomitant]
     Indication: Product used for unknown indication
     Dosage: VULVA
     Route: 065
     Dates: start: 20140605
  23. Aquacel [CARMELLOSE SODIUM] [Concomitant]
     Dosage: FOAM (CUTANEOUS)
     Route: 065
  24. MORPHINE [Concomitant]
     Active Substance: MORPHINE
     Indication: Product used for unknown indication
     Dosage: UNK
     Route: 065
     Dates: end: 20140607
  25. ADVIL [Concomitant]
     Active Substance: IBUPROFEN
     Indication: Product used for unknown indication
     Dosage: ONE DOSE
     Route: 065
     Dates: start: 20140602, end: 20140602
  26. MIDAZOLAM [Concomitant]
     Active Substance: MIDAZOLAM
     Indication: Product used for unknown indication
     Dosage: 1-2 TIMES DAILY DURING CARES
     Route: 065
     Dates: end: 20140610
  27. Nutrini [CARNITINE, CARBOHYDRATES NOS, CHOLINE, FATS NOS, MINERALS NOS [Concomitant]
     Indication: Product used for unknown indication
     Dosage: ENTERIC NUTRITION AE , 24 HOURS/24 HOURS
     Route: 065
  28. Nubain [NALBUPHINE HYDROCHLORIDE] [Concomitant]
     Indication: Product used for unknown indication
     Dosage: UNK
     Route: 065
  29. BACTROBAN [Concomitant]
     Active Substance: MUPIROCIN CALCIUM
     Indication: Product used for unknown indication
     Dosage: ONCE DAILY
     Route: 045

REACTIONS (4)
  - Hepatitis cholestatic [Recovering/Resolving]
  - Metabolic acidosis [Unknown]
  - Off label use [Unknown]
  - Hyponatraemia [Unknown]

NARRATIVE: CASE EVENT DATE: 20140604
